FAERS Safety Report 7657618-2 (Version None)
Quarter: 2011Q3

REPORT INFORMATION
  Report Type: 
  Country: None (occurrence: None)
  Receive Date: 20110804
  Receipt Date: 20110728
  Transmission Date: 20111222
  Serious: Yes (Death, Other)
  Sender: FDA-Public Use
  Company Number: US-GILEAD-2011-0042517

PATIENT
  Sex: Female

DRUGS (2)
  1. TRUVADA [Suspect]
     Indication: HIV INFECTION
     Route: 048
     Dates: start: 20091210, end: 20100304
  2. KALETRA [Concomitant]
     Indication: HIV INFECTION
     Dates: start: 20091210, end: 20100304

REACTIONS (1)
  - FOETAL GROWTH RESTRICTION [None]
